FAERS Safety Report 25797505 (Version 1)
Quarter: 2025Q3

REPORT INFORMATION
  Report Type: Spontaneous
  Country: US (occurrence: None)
  Receive Date: 20250912
  Receipt Date: 20250912
  Transmission Date: 20251020
  Serious: No
  Sender: FDA-CTU
  Company Number: None

PATIENT
  Age: 25 Year
  Sex: Female
  Weight: 52.2 kg

DRUGS (9)
  1. INAPSINE [Suspect]
     Active Substance: DROPERIDOL
     Indication: Headache
     Route: 042
     Dates: start: 20250909, end: 20250909
  2. HYDROXYCHLOROQUINE [Concomitant]
     Active Substance: HYDROXYCHLOROQUINE
  3. LEVOTHYROXINE [Concomitant]
     Active Substance: LEVOTHYROXINE
  4. SEROQUEL [Concomitant]
     Active Substance: QUETIAPINE FUMARATE
  5. NURTEC ODT [Concomitant]
     Active Substance: RIMEGEPANT SULFATE
  6. SLYND [Concomitant]
     Active Substance: DROSPIRENONE
  7. TYLENOL [Concomitant]
     Active Substance: ACETAMINOPHEN
  8. MOTRIN [Concomitant]
     Active Substance: IBUPROFEN
  9. EXCEDRIN [Concomitant]
     Active Substance: ACETAMINOPHEN\ASPIRIN\CAFFEINE

REACTIONS (4)
  - Anxiety [None]
  - Tremor [None]
  - Heart rate increased [None]
  - Impaired work ability [None]

NARRATIVE: CASE EVENT DATE: 20250909
